FAERS Safety Report 9784212 (Version 2)
Quarter: 2014Q2

REPORT INFORMATION
  Report Type: Spontaneous
  Country: US (occurrence: US)
  Receive Date: 20131226
  Receipt Date: 20140605
  Transmission Date: 20141212
  Serious: Yes (Hospitalization)
  Sender: FDA-Public Use
  Company Number: US-B.I. PHARMACEUTICALS,INC./RIDGEFIELD-2013-BI-43310BP

PATIENT
  Age: 76 Year
  Sex: Male
  Weight: 108 kg

DRUGS (13)
  1. PRADAXA [Suspect]
     Indication: ATRIAL FIBRILLATION
     Dosage: 300 MG
     Route: 065
     Dates: start: 20120111, end: 20120710
  2. PRADAXA [Suspect]
     Indication: ANTICOAGULANT THERAPY
  3. ACCUPRIL [Concomitant]
     Dosage: 40 MG
     Route: 048
  4. ALLOPURINOL [Concomitant]
     Dosage: 300 MG
     Route: 048
  5. ATENOLOL/CHLORTHALIDONE [Concomitant]
     Dosage: 50 MG
     Route: 048
  6. CEREFOLIN [Concomitant]
     Route: 065
  7. B2 [Concomitant]
     Route: 048
  8. B6 [Concomitant]
     Route: 048
  9. B12 [Concomitant]
     Route: 048
  10. DOXAZOSIN [Concomitant]
     Dosage: 4 MG
     Route: 048
  11. JANUVIA [Concomitant]
     Dosage: 50 MG
     Route: 048
  12. LASIX [Concomitant]
     Dosage: 40 MG
     Route: 048
  13. ZOCOR [Concomitant]
     Dosage: 80 MG
     Route: 048

REACTIONS (5)
  - Upper gastrointestinal haemorrhage [Recovered/Resolved]
  - Anaemia [Unknown]
  - Coagulopathy [Unknown]
  - Shock haemorrhagic [Unknown]
  - Renal failure acute [Unknown]
